FAERS Safety Report 12504105 (Version 1)
Quarter: 2016Q2

REPORT INFORMATION
  Report Type: Spontaneous
  Country: US (occurrence: None)
  Receive Date: 20160627
  Receipt Date: 20160627
  Transmission Date: 20160815
  Serious: Yes (Hospitalization)
  Sender: FDA-Public Use
  Company Number: None

PATIENT
  Age: 74 Year
  Sex: Male
  Weight: 113.4 kg

DRUGS (1)
  1. TRAZODONE [Suspect]
     Active Substance: TRAZODONE HYDROCHLORIDE
     Indication: INSOMNIA
     Route: 048
     Dates: start: 20160323, end: 20160328

REACTIONS (5)
  - Chronic obstructive pulmonary disease [None]
  - Bronchial secretion retention [None]
  - Respiratory failure [None]
  - Pneumonia aspiration [None]
  - Pneumothorax [None]

NARRATIVE: CASE EVENT DATE: 20160325
